FAERS Safety Report 5256194-1 (Version None)
Quarter: 2007Q1

REPORT INFORMATION
  Report Type: 
  Country: None (occurrence: None)
  Receive Date: 20070306
  Receipt Date: 20070226
  Transmission Date: 20070707
  Serious: Yes (Hospitalization)
  Sender: FDA-Public Use
  Company Number: DE-BAYER-200710258BVD

PATIENT
  Age: 50 Year
  Sex: Female

DRUGS (2)
  1. AVELOX [Suspect]
     Indication: CHOLECYSTITIS ACUTE
     Dosage: TOTAL DAILY DOSE: 400 MG
     Route: 042
     Dates: start: 20070219, end: 20070220
  2. AVELOX [Suspect]
     Dosage: TOTAL DAILY DOSE: 400 MG
     Route: 048
     Dates: start: 20070221, end: 20070222

REACTIONS (3)
  - CHOLESTASIS [None]
  - PANCREATITIS [None]
  - PYREXIA [None]
